FAERS Safety Report 5739036-7 (Version None)
Quarter: 2008Q2

REPORT INFORMATION
  Report Type: 
  Country: None (occurrence: None)
  Receive Date: 20080515
  Receipt Date: 20080515
  Transmission Date: 20081010
  Serious: Yes (Death)
  Sender: FDA-Public Use
  Company Number: None

PATIENT
  Sex: Male

DRUGS (1)
  1. HEPARIN [Suspect]
     Indication: THROMBOSIS
     Dates: start: 20060401, end: 20060501

REACTIONS (7)
  - DYSPHAGIA [None]
  - INFECTION [None]
  - INFLUENZA [None]
  - PAIN [None]
  - RENAL DISORDER [None]
  - RESPIRATORY DISORDER [None]
  - SPEECH DISORDER [None]
